FAERS Safety Report 15273341 (Version 1)
Quarter: 2018Q3

REPORT INFORMATION
  Report Type: Report from Study
  Country: CN (occurrence: CN)
  Receive Date: 20180813
  Receipt Date: 20180813
  Transmission Date: 20181010
  Serious: Yes (Other)
  Sender: FDA-Public Use
  Company Number: CN-SHIRE-CN201830935

PATIENT

DRUGS (1)
  1. FOSRENOL [Suspect]
     Active Substance: LANTHANUM CARBONATE
     Indication: DRUG THERAPY
     Dosage: 500 MG, 3X/DAY:TID
     Route: 048
     Dates: start: 20180525, end: 20180530

REACTIONS (1)
  - Arrhythmia [Recovering/Resolving]
